FAERS Safety Report 8503735-4 (Version None)
Quarter: 2012Q3

REPORT INFORMATION
  Report Type: 
  Country: None (occurrence: None)
  Receive Date: 20120711
  Receipt Date: 20120629
  Transmission Date: 20120928
  Serious: Yes (Death, Other)
  Sender: FDA-Public Use
  Company Number: US-009507513-2012SP036943

PATIENT

DRUGS (1)
  1. NUVARING [Suspect]
     Dates: start: 20100319, end: 20100728

REACTIONS (1)
  - PULMONARY EMBOLISM [None]
